FAERS Safety Report 5780938-3 (Version None)
Quarter: 2008Q2

REPORT INFORMATION
  Report Type: 
  Country: None (occurrence: None)
  Receive Date: 20080620
  Receipt Date: 20080609
  Transmission Date: 20081010
  Serious: Yes (Hospitalization)
  Sender: FDA-Public Use
  Company Number: CH-PFIZER INC-2008048298

PATIENT
  Sex: Male
  Weight: 66 kg

DRUGS (5)
  1. SUTENT [Suspect]
     Indication: METASTATIC RENAL CELL CARCINOMA
     Route: 048
     Dates: start: 20080317, end: 20080506
  2. ZOMETA [Concomitant]
     Route: 042
  3. ALL OTHER THERAPEUTIC PRODUCTS [Concomitant]
     Route: 048
  4. PRADIF [Concomitant]
     Route: 048
  5. FENTANYL-100 [Concomitant]
     Route: 062

REACTIONS (1)
  - IDIOPATHIC THROMBOCYTOPENIC PURPURA [None]
